FAERS Safety Report 16705419 (Version 2)
Quarter: 2019Q3

REPORT INFORMATION
  Report Type: Spontaneous
  Country: US (occurrence: US)
  Receive Date: 20190815
  Receipt Date: 20190902
  Transmission Date: 20191004
  Serious: Yes (Hospitalization)
  Sender: FDA-Public Use
  Company Number: US-ROCHE-2374382

PATIENT
  Age: 55 Year
  Sex: Male

DRUGS (1)
  1. TECENTRIQ [Suspect]
     Active Substance: ATEZOLIZUMAB
     Indication: LUNG NEOPLASM MALIGNANT
     Dosage: ONGOING: NO
     Route: 042

REACTIONS (7)
  - Pneumonitis [Recovering/Resolving]
  - Hepatitis [Recovering/Resolving]
  - Neuritis [Recovering/Resolving]
  - Pancreatitis [Recovering/Resolving]
  - Arthritis [Recovering/Resolving]
  - Gastrointestinal inflammation [Recovering/Resolving]
  - Intestinal obstruction [Recovering/Resolving]
